FAERS Safety Report 8834006 (Version 2)
Quarter: 2013Q1

REPORT INFORMATION
  Report Type: Spontaneous
  Country: US (occurrence: US)
  Receive Date: 20121010
  Receipt Date: 20130118
  Transmission Date: 20140127
  Serious: No
  Sender: FDA-Public Use
  Company Number: US-009507513-1210USA003427

PATIENT
  Age: 17 Year
  Sex: Female
  Weight: 73.88 kg

DRUGS (1)
  1. IMPLANON [Suspect]
     Indication: CONTRACEPTION
     Dosage: 68 MG, 3 YEARS
     Route: 059
     Dates: start: 20121005, end: 20121005

REACTIONS (2)
  - Device difficult to use [Unknown]
  - Product quality issue [Unknown]
